FAERS Safety Report 4449429-6 (Version None)
Quarter: 2004Q3

REPORT INFORMATION
  Report Type: 
  Country: None (occurrence: None)
  Receive Date: 20040908
  Receipt Date: 20040824
  Transmission Date: 20050211
  Serious: Yes (Death)
  Sender: FDA-Public Use
  Company Number: A0523198A

PATIENT
  Age: 55 Year
  Sex: Male

DRUGS (1)
  1. COMMIT [Suspect]
     Indication: EX-SMOKER
     Dosage: 4 MG / TRANSBUCCAL
     Dates: start: 20040101, end: 20040101

REACTIONS (2)
  - GASTRIC CANCER [None]
  - MALIGNANT NEOPLASM PROGRESSION [None]
